FAERS Safety Report 8041674-6 (Version None)
Quarter: 2012Q1

REPORT INFORMATION
  Report Type: 
  Country: None (occurrence: None)
  Receive Date: 20120112
  Receipt Date: 20120103
  Transmission Date: 20120608
  Serious: No
  Sender: FDA-Public Use
  Company Number: GB-ELI_LILLY_AND_COMPANY-GB201201001783

PATIENT
  Sex: Male

DRUGS (4)
  1. VALPROATE SODIUM [Concomitant]
  2. ALCOHOL [Concomitant]
     Dosage: 1 DF, QD
  3. OLANZAPINE [Suspect]
     Indication: BIPOLAR DISORDER
  4. LITHIUM [Concomitant]

REACTIONS (3)
  - MEAN CELL HAEMOGLOBIN INCREASED [None]
  - RED BLOOD CELL COUNT DECREASED [None]
  - MEAN CELL VOLUME INCREASED [None]
